FAERS Safety Report 10743579 (Version 1)
Quarter: 2015Q1

REPORT INFORMATION
  Report Type: Report from Study
  Country: US (occurrence: US)
  Receive Date: 20150128
  Receipt Date: 20150128
  Transmission Date: 20150721
  Serious: Yes (Hospitalization)
  Sender: FDA-Public Use
  Company Number: PHHO2014US017322

PATIENT
  Age: 54 Year
  Sex: Male
  Weight: 84.7 kg

DRUGS (14)
  1. CELLCEPT [Concomitant]
     Active Substance: MYCOPHENOLATE MOFETIL\MYCOPHENOLATE MOFETIL HYDROCHLORIDE
     Dosage: 2/2 MG, BID
     Route: 065
     Dates: start: 20150101, end: 20150106
  2. SENOKOT-S [Concomitant]
     Active Substance: DOCUSATE SODIUM\SENNOSIDES
     Indication: CONSTIPATION
     Dosage: 1 DF (TAB), BID
     Route: 065
     Dates: start: 20141217
  3. CELLCEPT [Concomitant]
     Active Substance: MYCOPHENOLATE MOFETIL\MYCOPHENOLATE MOFETIL HYDROCHLORIDE
     Dosage: 2/2 MG, BID
     Route: 065
     Dates: start: 20150111
  4. TACROLIMUS. [Suspect]
     Active Substance: TACROLIMUS
     Dosage: 2/2 MG
     Route: 065
     Dates: start: 20150111, end: 20150112
  5. CELLCEPT [Concomitant]
     Active Substance: MYCOPHENOLATE MOFETIL\MYCOPHENOLATE MOFETIL HYDROCHLORIDE
     Dosage: 3/3 MG, BID
     Route: 065
     Dates: start: 20150107, end: 20150110
  6. REGELAN [Concomitant]
     Active Substance: CLOFIBRATE
     Indication: IMPAIRED GASTRIC EMPTYING
     Dosage: 5 MG, BID
     Route: 048
     Dates: start: 20141219, end: 20150102
  7. TACROLIMUS. [Suspect]
     Active Substance: TACROLIMUS
     Dosage: 3/3 MG
     Route: 065
     Dates: start: 20150107, end: 20150110
  8. ZOFRAN [Concomitant]
     Active Substance: ONDANSETRON HYDROCHLORIDE
     Indication: NAUSEA
     Dosage: 4 MG, PRN
     Route: 048
     Dates: start: 20141217
  9. TACROLIMUS. [Suspect]
     Active Substance: TACROLIMUS
     Indication: RENAL TRANSPLANT
     Dosage: 2/2 MG
     Route: 065
     Dates: start: 20150102, end: 20150106
  10. TACROLIMUS. [Suspect]
     Active Substance: TACROLIMUS
     Dosage: 1/1 MG
     Route: 065
  11. CELLCEPT [Concomitant]
     Active Substance: MYCOPHENOLATE MOFETIL\MYCOPHENOLATE MOFETIL HYDROCHLORIDE
     Indication: RENAL TRANSPLANT
     Dosage: 3 MG, BID
     Route: 065
     Dates: start: 20141210, end: 20141228
  12. CELLCEPT [Concomitant]
     Active Substance: MYCOPHENOLATE MOFETIL\MYCOPHENOLATE MOFETIL HYDROCHLORIDE
     Dosage: 3/1 MG,
     Route: 065
     Dates: start: 20141231, end: 20141231
  13. CELLCEPT [Concomitant]
     Active Substance: MYCOPHENOLATE MOFETIL\MYCOPHENOLATE MOFETIL HYDROCHLORIDE
     Dosage: 3/2 MG
     Route: 065
     Dates: start: 20141230, end: 20141230
  14. DOMPERIDONE [Concomitant]
     Active Substance: DOMPERIDONE
     Indication: IMPAIRED GASTRIC EMPTYING
     Dosage: 8 MG, BID
     Route: 048

REACTIONS (10)
  - Gastritis erosive [Recovered/Resolved]
  - Abdominal pain [Recovered/Resolved]
  - Gastritis [Recovered/Resolved]
  - Adjustment disorder [Recovered/Resolved]
  - Reading disorder [Recovered/Resolved]
  - Toxicity to various agents [Recovered/Resolved]
  - Nausea [Recovered/Resolved]
  - Acute kidney injury [Recovered/Resolved]
  - Vomiting [Recovered/Resolved]
  - Diarrhoea [Recovered/Resolved]

NARRATIVE: CASE EVENT DATE: 20141228
